FAERS Safety Report 6685333-0 (Version None)
Quarter: 2010Q2

REPORT INFORMATION
  Report Type: 
  Country: None (occurrence: None)
  Receive Date: 20100416
  Receipt Date: 20090917
  Transmission Date: 20101027
  Serious: Yes (Hospitalization)
  Sender: FDA-Public Use
  Company Number: US-AMGEN-STX365144

PATIENT
  Sex: Female

DRUGS (9)
  1. SENSIPAR [Suspect]
     Indication: HYPERPARATHYROIDISM SECONDARY
     Dates: start: 20090701, end: 20090801
  2. EPOGEN [Concomitant]
     Indication: DIALYSIS
  3. PHOSLO [Concomitant]
  4. LABETALOL HCL [Concomitant]
  5. MIRALAX [Concomitant]
  6. AMBIEN [Concomitant]
  7. UNSPECIFIED VITAMINS [Concomitant]
  8. LISINOPRIL [Concomitant]
  9. NIFEDIPINE [Concomitant]

REACTIONS (1)
  - CONVULSION [None]
